FAERS Safety Report 25617950 (Version 1)
Quarter: 2025Q3

REPORT INFORMATION
  Report Type: Spontaneous
  Country: GB (occurrence: GB)
  Receive Date: 20250729
  Receipt Date: 20250729
  Transmission Date: 20251021
  Serious: Yes (Other)
  Sender: TEVA
  Company Number: GB-MHRA-MED-202507211217102890-FGZVP

PATIENT
  Age: 63 Year
  Sex: Female
  Weight: 56 kg

DRUGS (1)
  1. ALENDRONIC ACID [Suspect]
     Active Substance: ALENDRONIC ACID
     Indication: Osteoporosis
     Route: 065
     Dates: start: 20200721, end: 20250301

REACTIONS (1)
  - Cholesteatoma [Not Recovered/Not Resolved]

NARRATIVE: CASE EVENT DATE: 20241228
